FAERS Safety Report 8056706-9 (Version None)
Quarter: 2012Q1

REPORT INFORMATION
  Report Type: 
  Country: None (occurrence: None)
  Receive Date: 20120119
  Receipt Date: 20120113
  Transmission Date: 20120608
  Serious: Yes (Other)
  Sender: FDA-Public Use
  Company Number: CA-PFIZER INC-2011242454

PATIENT
  Age: 55 Year
  Sex: Female
  Weight: 54.4 kg

DRUGS (3)
  1. PRILOSEC [Suspect]
     Indication: HIATUS HERNIA
     Dosage: UNK
     Dates: start: 19920301
  2. PRILOSEC [Suspect]
     Dosage: 1 DF, UNK
     Route: 065
     Dates: start: 20070107, end: 20070109
  3. PANTOPRAZOLE SODIUM [Suspect]
     Indication: HIATUS HERNIA
     Dosage: 2 DF, 1X/DAY
     Dates: start: 20070115, end: 20070117

REACTIONS (5)
  - OESOPHAGEAL PAIN [None]
  - ANXIETY [None]
  - ABDOMINAL PAIN UPPER [None]
  - TREMOR [None]
  - OROPHARYNGEAL PAIN [None]
